FAERS Safety Report 25271230 (Version 6)
Quarter: 2025Q3

REPORT INFORMATION
  Report Type: Report from Study
  Country: US (occurrence: US)
  Receive Date: 20250506
  Receipt Date: 20250918
  Transmission Date: 20251020
  Serious: Yes (Hospitalization, Other)
  Sender: DECIPHERA PHARMACEUTICALS
  Company Number: US-DECIPHERA PHARMACEUTICALS LLC-2025US000436

PATIENT
  Age: 47 Year
  Sex: Female

DRUGS (2)
  1. QINLOCK [Suspect]
     Active Substance: RIPRETINIB
     Indication: Gastrointestinal stromal tumour
     Dosage: 150 MILLIGRAM, QD
     Route: 048
     Dates: start: 20250310, end: 2025
  2. QINLOCK [Suspect]
     Active Substance: RIPRETINIB
     Dosage: 150 MILLIGRAM, QD
     Route: 048
     Dates: start: 2025

REACTIONS (15)
  - Skin cancer [Unknown]
  - Malignant neoplasm progression [Unknown]
  - Cerebrovascular accident [Unknown]
  - Thrombosis [Unknown]
  - Blood pressure abnormal [Unknown]
  - Appendicitis [Unknown]
  - Paraesthesia [Unknown]
  - Amblyopia [Unknown]
  - Abdominal pain upper [Unknown]
  - Pain in extremity [Unknown]
  - Blood pressure increased [Unknown]
  - Vision blurred [Unknown]
  - Melanocytic naevus [Unknown]
  - Myalgia [Not Recovered/Not Resolved]
  - Product dose omission issue [Unknown]

NARRATIVE: CASE EVENT DATE: 20250101
